FAERS Safety Report 19271868 (Version 1)
Quarter: 2021Q2

REPORT INFORMATION
  Report Type: Spontaneous
  Country: US (occurrence: US)
  Receive Date: 20210519
  Receipt Date: 20210519
  Transmission Date: 20210717
  Serious: No
  Sender: FDA-Public Use
  Company Number: US-NOVEN PHARMACEUTICALS, INC.-2021US002483

PATIENT
  Age: 21 Year
  Sex: Male
  Weight: 77.1 kg

DRUGS (2)
  1. DAYTRANA [Suspect]
     Active Substance: METHYLPHENIDATE
     Dosage: 15MG/9HRS, UNKNOWN
     Route: 062
     Dates: start: 20201223, end: 20201228
  2. DAYTRANA [Suspect]
     Active Substance: METHYLPHENIDATE
     Indication: ATTENTION DEFICIT HYPERACTIVITY DISORDER
     Dosage: 15MG/9HRS, UNKNOWN
     Route: 062

REACTIONS (6)
  - Product administration error [Recovered/Resolved]
  - No adverse event [Unknown]
  - Device adhesion issue [Recovered/Resolved]
  - Product adhesion issue [Recovered/Resolved]
  - Off label use [Recovered/Resolved]
  - Device difficult to use [Recovered/Resolved]

NARRATIVE: CASE EVENT DATE: 202012
